FAERS Safety Report 6398544-9 (Version None)
Quarter: 2009Q4

REPORT INFORMATION
  Report Type: 
  Country: None (occurrence: None)
  Receive Date: 20091013
  Receipt Date: 20091001
  Transmission Date: 20100525
  Serious: Yes (Other)
  Sender: FDA-Public Use
  Company Number: GB-PFIZER INC-2009261008

PATIENT
  Age: 63 Year

DRUGS (6)
  1. SILDENAFIL CITRATE [Suspect]
     Indication: PULMONARY HYPERTENSION
     Dosage: 1 MG/ HOUR
     Route: 042
     Dates: start: 20090814, end: 20090814
  2. SILDENAFIL CITRATE [Suspect]
     Indication: RIGHT VENTRICULAR FAILURE
     Dosage: UNK
  3. MILRINONE [Concomitant]
     Dosage: 0.4 MCG/KG/MIN
     Route: 042
     Dates: start: 20090813
  4. NORADRENALINE [Concomitant]
     Dosage: 0.3 MCG/KG/MIN
     Route: 042
     Dates: start: 20090813
  5. ADRENALINE [Concomitant]
     Dosage: 0.12 MCG/KG/MIN
     Route: 042
     Dates: start: 20090814
  6. NITRIC OXIDE [Concomitant]
     Dosage: 26 PPM
     Route: 055
     Dates: start: 20090813

REACTIONS (4)
  - BLOOD PRESSURE DECREASED [None]
  - INCORRECT ROUTE OF DRUG ADMINISTRATION [None]
  - MEAN ARTERIAL PRESSURE DECREASED [None]
  - VASCULAR RESISTANCE SYSTEMIC DECREASED [None]
